FAERS Safety Report 5793753-1 (Version None)
Quarter: 2008Q2

REPORT INFORMATION
  Report Type: 
  Country: None (occurrence: None)
  Receive Date: 20080627
  Receipt Date: 20080616
  Transmission Date: 20081010
  Serious: Yes (Death, Other)
  Sender: FDA-Public Use
  Company Number: JP-PFIZER INC-2008052338

PATIENT
  Age: 21 Year
  Sex: Male

DRUGS (1)
  1. SOLU-CORTEF [Suspect]
     Indication: CARDIAC OPERATION
     Dosage: DAILY DOSE:1100MG

REACTIONS (2)
  - BLOOD GLUCOSE INCREASED [None]
  - MYOCARDIAL INFARCTION [None]
